FAERS Safety Report 4485356-6 (Version None)
Quarter: 2004Q4

REPORT INFORMATION
  Report Type: 
  Country: None (occurrence: None)
  Receive Date: 20041025
  Receipt Date: 20041025
  Transmission Date: 20050328
  Serious: Yes (Hospitalization)
  Sender: FDA-Public Use
  Company Number: None

PATIENT
  Sex: Male
  Weight: 88.4514 kg

DRUGS (5)
  1. GAMMAGARD S/D [Suspect]
     Indication: DEMYELINATING POLYNEUROPATHY
     Dosage: 45 GM/D X 4D   EVERY MONTH   INTRAVENOU
     Route: 042
     Dates: start: 20040726, end: 20040729
  2. GAMMAGARD S/D [Suspect]
  3. TYLENOL [Concomitant]
  4. ZONEGRAN [Concomitant]
  5. PAXIL CR [Concomitant]

REACTIONS (2)
  - PULMONARY EMBOLISM [None]
  - RASH [None]
